FAERS Safety Report 4302150-7 (Version None)
Quarter: 2004Q1

REPORT INFORMATION
  Report Type: 
  Country: None (occurrence: None)
  Receive Date: 20040126
  Receipt Date: 20031016
  Transmission Date: 20041129
  Serious: No
  Sender: FDA-Public Use
  Company Number: US_031098437

PATIENT
  Age: 12 Year
  Sex: 0

DRUGS (1)
  1. STRATTERA [Suspect]

REACTIONS (2)
  - DISTURBANCE IN ATTENTION [None]
  - LETHARGY [None]
